FAERS Safety Report 16964284 (Version 1)
Quarter: 2019Q4

REPORT INFORMATION
  Report Type: Spontaneous
  Country: US (occurrence: US)
  Receive Date: 20191026
  Receipt Date: 20191026
  Transmission Date: 20200122
  Serious: No
  Sender: FDA-Public Use
  Company Number: None

PATIENT
  Age: 56 Year
  Sex: Male

DRUGS (4)
  1. FENOFIBRATE 145MG [Concomitant]
  2. METFORMIN 500MG [Concomitant]
     Active Substance: METFORMIN HYDROCHLORIDE
  3. TRULICITY [Suspect]
     Active Substance: DULAGLUTIDE
     Dosage: ?          OTHER FREQUENCY:ONCE A WEEK;?
     Route: 058
  4. ATORVASTATIN 40MG [Concomitant]
     Active Substance: ATORVASTATIN

REACTIONS (3)
  - Abdominal pain upper [None]
  - Nausea [None]
  - Pain [None]

NARRATIVE: CASE EVENT DATE: 20191001
